FAERS Safety Report 23960208 (Version 1)
Quarter: 2024Q2

REPORT INFORMATION
  Report Type: Spontaneous
  Country: CA (occurrence: CA)
  Receive Date: 20240611
  Receipt Date: 20240611
  Transmission Date: 20240716
  Serious: Yes (Death, Other)
  Sender: FDA-Public Use
  Company Number: CA-SA-SAC20240528000324

PATIENT
  Sex: Male

DRUGS (4)
  1. LIBTAYO [Suspect]
     Active Substance: CEMIPLIMAB-RWLC
     Indication: Skin cancer
     Dosage: UNK
     Route: 065
  2. LIBTAYO [Suspect]
     Active Substance: CEMIPLIMAB-RWLC
     Indication: Squamous cell carcinoma
  3. LIBTAYO [Suspect]
     Active Substance: CEMIPLIMAB-RWLC
     Indication: Chronic lymphocytic leukaemia
  4. ACALABRUTINIB [Concomitant]
     Active Substance: ACALABRUTINIB
     Indication: Product used for unknown indication
     Dosage: UNK

REACTIONS (1)
  - Encephalitis [Fatal]
